FAERS Safety Report 10204875 (Version 2)
Quarter: 2014Q2

REPORT INFORMATION
  Report Type: Report from Study
  Country: JP (occurrence: JP)
  Receive Date: 20140529
  Receipt Date: 20140529
  Transmission Date: 20141212
  Serious: Yes (Death, Hospitalization)
  Sender: FDA-Public Use
  Company Number: JP-ALEXION PHARMACEUTICALS INC.-A201401186

PATIENT
  Sex: 0

DRUGS (2)
  1. SOLIRIS [Suspect]
     Indication: HAEMOLYTIC URAEMIC SYNDROME
     Dosage: UNK, QW
     Route: 042
     Dates: start: 20140131
  2. SOLIRIS [Suspect]
     Dosage: UNK, Q2W
     Route: 042
     Dates: end: 20140226

REACTIONS (2)
  - Haemorrhage [Unknown]
  - Cerebral haemorrhage [Fatal]
